FAERS Safety Report 17488498 (Version 1)
Quarter: 2020Q1

REPORT INFORMATION
  Report Type: Spontaneous
  Country: US (occurrence: US)
  Receive Date: 20200302
  Receipt Date: 20200302
  Transmission Date: 20200409
  Serious: Yes (Disabling)
  Sender: FDA-Public Use
  Company Number: None

PATIENT
  Age: 29 Year
  Sex: Male
  Weight: 74.25 kg

DRUGS (1)
  1. WELLBUTRIN SR [Suspect]
     Active Substance: BUPROPION HYDROCHLORIDE
     Indication: DEPRESSION
     Dates: start: 20190301, end: 20190330

REACTIONS (5)
  - Tinnitus [None]
  - Deafness unilateral [None]
  - Inner ear inflammation [None]
  - Vertigo [None]
  - Deafness [None]

NARRATIVE: CASE EVENT DATE: 20190310
